FAERS Safety Report 11694016 (Version 1)
Quarter: 2015Q4

REPORT INFORMATION
  Report Type: Report from Study
  Country: US (occurrence: US)
  Receive Date: 20151103
  Receipt Date: 20151103
  Transmission Date: 20160304
  Serious: Yes (Other)
  Sender: FDA-Public Use
  Company Number: US-BAYER-2015-451258

PATIENT
  Age: 55 Year
  Sex: Female

DRUGS (1)
  1. STIVARGA [Suspect]
     Active Substance: REGORAFENIB
     Indication: COLON CANCER
     Dosage: 4 TABS QD
     Route: 048
     Dates: start: 20150922, end: 20151005

REACTIONS (9)
  - Pain in extremity [None]
  - Weight decreased [None]
  - Blister [None]
  - Vomiting [None]
  - Diarrhoea [None]
  - Fatigue [None]
  - Stomatitis [None]
  - Neuropathy peripheral [None]
  - Nausea [None]

NARRATIVE: CASE EVENT DATE: 20151005
